FAERS Safety Report 10375999 (Version 1)
Quarter: 2014Q1

REPORT INFORMATION
  Report Type: Spontaneous
  Country: US (occurrence: None)
  Receive Date: 20140306
  Receipt Date: 20140306
  Transmission Date: 20141002
  Serious: Yes (Hospitalization)
  Sender: FDA-Public Use
  Company Number: 163-21880-13034856

PATIENT
  Age: 72 Year
  Sex: Female
  Weight: 58.97 kg

DRUGS (11)
  1. REVLIMID (LENALIDOMIDE) (15 MILLIGRAM, CAPSULES) [Suspect]
     Indication: PLASMA CELL MYELOMA
     Route: 048
     Dates: start: 201007
  2. ACYCLOVIR(ACICLOVIR) [Concomitant]
  3. ALLEGRA(FEXOFENADINE HYDROCHLORIDE) [Concomitant]
  4. ASPIRIN(ACETYLSALICYLIC ACID) [Concomitant]
  5. DEXAMETHASONE(DEXAMETHASONE) [Concomitant]
  6. FOLBEE(TRIOBE) [Concomitant]
  7. MAALOX(MAALOX) [Concomitant]
  8. METOPROLOL SUCCINATE(METOPROLOL SUCCINATE) [Concomitant]
  9. MIRALAX(MACROGOL) [Concomitant]
  10. MULTIVITAMINS(MULTIVITAMINS) [Concomitant]
  11. NASONEX(MOMETASONE FUROATE) [Concomitant]

REACTIONS (1)
  - Pneumonia [None]
